FAERS Safety Report 23947526 (Version 1)
Quarter: 2024Q2

REPORT INFORMATION
  Report Type: Spontaneous
  Country: GB (occurrence: GB)
  Receive Date: 20240606
  Receipt Date: 20240606
  Transmission Date: 20240715
  Serious: Yes (Other)
  Sender: FDA-Public Use
  Company Number: GB-MHRA-TPP22770486C10607429YC1716889803473

PATIENT
  Age: 58 Year
  Sex: Female
  Weight: 76 kg

DRUGS (4)
  1. NAPROXEN [Suspect]
     Active Substance: NAPROXEN
     Indication: Product used for unknown indication
     Dosage: TAKE ONE TWICE DAILY
     Route: 065
     Dates: start: 20240422
  2. LANSOPRAZOLE [Concomitant]
     Active Substance: LANSOPRAZOLE
     Indication: Ill-defined disorder
     Route: 065
     Dates: start: 20230518
  3. ACETAMINOPHEN\CODEINE PHOSPHATE [Concomitant]
     Active Substance: ACETAMINOPHEN\CODEINE PHOSPHATE
     Indication: Ill-defined disorder
     Dosage: ONE TO TWO TABLETS TO BE TAKEN EVERY FOUR TO SI...
     Route: 065
     Dates: start: 20240520
  4. BIMATOPROST [Concomitant]
     Active Substance: BIMATOPROST
     Indication: Ill-defined disorder
     Dosage: ONE DROP ONCE A DAY AT NIGHT ASD BY SPECIALIST
     Route: 065
     Dates: start: 20211126

REACTIONS (1)
  - Joint swelling [Recovered/Resolved]

NARRATIVE: CASE EVENT DATE: 20240528
